FAERS Safety Report 25283614 (Version 1)
Quarter: 2025Q2

REPORT INFORMATION
  Report Type: Report from Study
  Country: US (occurrence: US)
  Receive Date: 20250508
  Receipt Date: 20250508
  Transmission Date: 20250716
  Serious: Yes (Hospitalization, Other)
  Sender: PFIZER
  Company Number: US-PFIZER INC-PV202300054729

PATIENT
  Age: 82 Year
  Sex: Male
  Weight: 99.4 kg

DRUGS (19)
  1. VYNDAQEL [Suspect]
     Active Substance: TAFAMIDIS MEGLUMINE
     Indication: Amyloidosis
     Dosage: TAKE 4 CAPSULES DAILY
     Route: 048
     Dates: start: 20190801
  2. VYNDAQEL [Suspect]
     Active Substance: TAFAMIDIS MEGLUMINE
     Dosage: 80 MG, 1X/DAY
     Route: 048
     Dates: start: 20220129
  3. VYNDAQEL [Suspect]
     Active Substance: TAFAMIDIS MEGLUMINE
     Dosage: TAKE 4 CAPSULES ONCE DAILY
     Route: 048
  4. VYNDAQEL [Suspect]
     Active Substance: TAFAMIDIS MEGLUMINE
     Dosage: TAKE 4 CAPSULES ONCE DAILY
     Route: 048
  5. VYNDAQEL [Suspect]
     Active Substance: TAFAMIDIS MEGLUMINE
     Dosage: TAKE 80 MG (4 CAPSULES) BY MOUTH DAILY
     Route: 048
  6. BACLOFEN [Concomitant]
     Active Substance: BACLOFEN
  7. DULOXETINE [Concomitant]
     Active Substance: DULOXETINE
  8. ELIQUIS [Concomitant]
     Active Substance: APIXABAN
  9. FUROSEMIDE [Concomitant]
     Active Substance: FUROSEMIDE
  10. LIDOCAINE [Concomitant]
     Active Substance: LIDOCAINE
  11. LISINOPRIL [Concomitant]
     Active Substance: LISINOPRIL
  12. SPIRONOLACTONE [Concomitant]
     Active Substance: SPIRONOLACTONE
  13. TYLENOL [Concomitant]
     Active Substance: ACETAMINOPHEN
  14. XANAX [Concomitant]
     Active Substance: ALPRAZOLAM
  15. ARICEPT [Concomitant]
     Active Substance: DONEPEZIL HYDROCHLORIDE
  16. CYMBALTA [Concomitant]
     Active Substance: DULOXETINE HYDROCHLORIDE
  17. LASIX [Concomitant]
     Active Substance: FUROSEMIDE
  18. WEGOVY [Concomitant]
     Active Substance: SEMAGLUTIDE
  19. ALDACTONE [Concomitant]
     Active Substance: SPIRONOLACTONE

REACTIONS (10)
  - Gallbladder operation [Recovered/Resolved]
  - Dyspnoea [Recovered/Resolved]
  - Pulmonary oedema [Recovered/Resolved]
  - Heart rate increased [Recovered/Resolved]
  - Pleural effusion [Unknown]
  - Cholecystitis [Unknown]
  - Muscle atrophy [Recovered/Resolved]
  - Dizziness [Not Recovered/Not Resolved]
  - Dizziness postural [Recovering/Resolving]
  - Product dose omission in error [Unknown]

NARRATIVE: CASE EVENT DATE: 20240827
